FAERS Safety Report 4980580-8 (Version None)
Quarter: 2006Q2

REPORT INFORMATION
  Report Type: 
  Country: None (occurrence: None)
  Receive Date: 20060424
  Receipt Date: 20050620
  Transmission Date: 20061013
  Serious: Yes (Death, Hospitalization, Disabling)
  Sender: FDA-Public Use
  Company Number: US-MERCK-0506USA02939

PATIENT
  Age: 68 Year
  Sex: Male
  Weight: 91 kg

DRUGS (18)
  1. VIOXX [Suspect]
     Indication: ARTHRITIS
     Route: 048
     Dates: start: 20001201, end: 20030601
  2. TOPROL-XL [Concomitant]
     Indication: HYPERTENSION
     Route: 065
  3. TOPROL-XL [Concomitant]
     Indication: ATRIAL FIBRILLATION
     Route: 065
  4. REGLAN [Concomitant]
     Indication: GASTROOESOPHAGEAL REFLUX DISEASE
     Route: 065
  5. REGLAN [Concomitant]
     Indication: ULCER
     Route: 065
  6. AVAPRO [Concomitant]
     Route: 065
  7. GLYBURIDE [Concomitant]
     Route: 065
  8. PEPCID [Concomitant]
     Indication: GASTROOESOPHAGEAL REFLUX DISEASE
     Route: 065
  9. PEPCID [Concomitant]
     Indication: ULCER
     Route: 065
  10. NORVASC [Concomitant]
     Indication: ATRIAL FIBRILLATION
     Route: 065
  11. ASPIRIN [Concomitant]
     Indication: ANTICOAGULANT THERAPY
     Route: 065
  12. DIGOXIN [Concomitant]
     Route: 065
  13. IBUPROFEN [Concomitant]
     Indication: PAIN
     Route: 065
  14. CATAPRES [Concomitant]
     Indication: ANGINA PECTORIS
     Route: 065
  15. ALLOPURINOL [Concomitant]
     Indication: RHEUMATOID ARTHRITIS
     Route: 065
  16. ALLOPURINOL [Concomitant]
     Indication: GOUT
     Route: 065
  17. [THERAPY UNSPECIFIED] [Concomitant]
     Route: 065
  18. [THERAPY UNSPECIFIED] [Concomitant]
     Route: 065

REACTIONS (6)
  - CARDIO-RESPIRATORY ARREST [None]
  - CEREBROVASCULAR ACCIDENT [None]
  - MYOCARDIAL INFARCTION [None]
  - PERIPHERAL VASCULAR DISORDER [None]
  - PROSTATE CANCER [None]
  - SEPSIS [None]
